FAERS Safety Report 5578719-9 (Version None)
Quarter: 2008Q1

REPORT INFORMATION
  Report Type: 
  Country: None (occurrence: None)
  Receive Date: 20080102
  Receipt Date: 20071231
  Transmission Date: 20080703
  Serious: Yes (Other)
  Sender: FDA-Public Use
  Company Number: FR-BRISTOL-MYERS SQUIBB COMPANY-13615604

PATIENT
  Age: 76 Year
  Sex: Female
  Weight: 55 kg

DRUGS (9)
  1. TAXOL [Suspect]
     Indication: PERITONEAL CARCINOMA
     Route: 042
     Dates: start: 20060305, end: 20060305
  2. CARBOPLATIN [Concomitant]
  3. PREVISCAN [Concomitant]
     Indication: PHLEBITIS
     Dates: start: 20040720
  4. FOSINOPRIL SODIUM AND HYDROCHLOROTHIAZIDE [Concomitant]
     Dates: end: 20060313
  5. NEORECORMON [Concomitant]
     Dates: start: 20060109, end: 20060313
  6. DI-ANTALVIC [Concomitant]
     Indication: PAIN
     Dates: start: 20040901
  7. RANITIDINE HCL [Concomitant]
     Indication: PREMEDICATION
     Route: 042
  8. POLARAMINE [Concomitant]
     Indication: PREMEDICATION
     Route: 042
  9. SOLU-MEDROL [Concomitant]
     Indication: PREMEDICATION
     Route: 042

REACTIONS (1)
  - SYSTEMIC LUPUS ERYTHEMATOSUS [None]
